FAERS Safety Report 10313849 (Version 1)
Quarter: 2014Q3

REPORT INFORMATION
  Report Type: Spontaneous
  Country: IT (occurrence: None)
  Receive Date: 20140716
  Receipt Date: 20140716
  Transmission Date: 20150326
  Serious: Yes (Other)
  Sender: FDA-Public Use
  Company Number: 2436210

PATIENT
  Age: 73 Year
  Sex: Female

DRUGS (2)
  1. (METHOTREXATE) [Suspect]
     Active Substance: METHOTREXATE
     Indication: RHEUMATOID ARTHRITIS
     Dosage: 1 WEEK, UNKNOWN
  2. (NSAID^S) [Concomitant]

REACTIONS (2)
  - Hepatitis B [None]
  - Hepatic necrosis [None]
